FAERS Safety Report 23931473 (Version 1)
Quarter: 2024Q2

REPORT INFORMATION
  Report Type: Spontaneous
  Country: IN (occurrence: IN)
  Receive Date: 20240603
  Receipt Date: 20240603
  Transmission Date: 20240716
  Serious: Yes (Hospitalization, Other)
  Sender: FDA-Public Use
  Company Number: IN-SANDOZ-SDZ2023IN052277

PATIENT
  Sex: Male

DRUGS (4)
  1. MYFORTIC [Suspect]
     Active Substance: MYCOPHENOLATE SODIUM
     Indication: Product used for unknown indication
     Dosage: 360 MG, BID
     Route: 048
     Dates: start: 20190503
  2. MYFORTIC [Suspect]
     Active Substance: MYCOPHENOLATE SODIUM
     Indication: Renal transplant
  3. TACROLIMUS [Suspect]
     Active Substance: TACROLIMUS
     Indication: Product used for unknown indication
     Dosage: 1.5 MG, BID (BD)
     Route: 048
     Dates: start: 20190503
  4. TACROLIMUS [Suspect]
     Active Substance: TACROLIMUS
     Indication: Renal transplant

REACTIONS (20)
  - Toxicity to various agents [Unknown]
  - Transplant dysfunction [Unknown]
  - Anaemia [Unknown]
  - Septic shock [Unknown]
  - New onset diabetes after transplantation [Unknown]
  - COVID-19 [Unknown]
  - Neutropenic sepsis [Unknown]
  - Hypertensive nephropathy [Unknown]
  - Vital functions abnormal [Unknown]
  - Heart rate increased [Unknown]
  - Body mass index increased [Unknown]
  - Breath sounds abnormal [Unknown]
  - Blood urea increased [Unknown]
  - Vitamin D abnormal [Unknown]
  - Transferrin abnormal [Unknown]
  - Blood glucose abnormal [Unknown]
  - Glomerular filtration rate decreased [Unknown]
  - Haemoglobin abnormal [Unknown]
  - Hypertension [Unknown]
  - Goitre [Unknown]
